FAERS Safety Report 23988931 (Version 1)
Quarter: 2024Q2

REPORT INFORMATION
  Report Type: Report from Study
  Country: US (occurrence: None)
  Receive Date: 20240619
  Receipt Date: 20240619
  Transmission Date: 20240716
  Serious: Yes (Other)
  Sender: FDA-Public Use
  Company Number: 2024A136494

PATIENT
  Sex: Male

DRUGS (2)
  1. CALQUENCE [Suspect]
     Active Substance: ACALABRUTINIB
     Indication: Chronic lymphocytic leukaemia
     Route: 048
     Dates: start: 202211
  2. AMLODIPINE BESYLATE [Concomitant]
     Active Substance: AMLODIPINE BESYLATE

REACTIONS (6)
  - Peripheral arterial occlusive disease [Unknown]
  - Blood pressure increased [Unknown]
  - Contusion [Unknown]
  - Eye injury [Unknown]
  - Full blood count abnormal [Unknown]
  - Product dose omission in error [Unknown]
